FAERS Safety Report 9239355 (Version 1)
Quarter: 2013Q2

REPORT INFORMATION
  Report Type: Spontaneous
  Country: None (occurrence: JP)
  Receive Date: 20130418
  Receipt Date: 20130418
  Transmission Date: 20140414
  Serious: Yes (Death)
  Sender: FDA-Public Use
  Company Number: JP-TEVA-399227ISR

PATIENT
  Age: 66 Year
  Sex: Female

DRUGS (2)
  1. CISPLATIN [Suspect]
     Indication: SMALL CELL LUNG CANCER
     Dosage: ON DAY 1. TOTAL 3 CYCLES
     Route: 042
  2. CAMPTO [Suspect]
     Indication: SMALL CELL LUNG CANCER
     Dosage: 1XDAY ON DAYS 1, 8, AND 15
     Route: 042

REACTIONS (1)
  - Radiation pneumonitis [Fatal]
